FAERS Safety Report 5758447-7 (Version None)
Quarter: 2008Q2

REPORT INFORMATION
  Report Type: 
  Country: None (occurrence: None)
  Receive Date: 20080604
  Receipt Date: 20080529
  Transmission Date: 20081010
  Serious: Yes (Other)
  Sender: FDA-Public Use
  Company Number: US-TEVA-172252USA

PATIENT
  Sex: Female
  Weight: 64.014 kg

DRUGS (1)
  1. PHENTERMINE HYDROCHLORIDE 37.5 MG [Suspect]
     Route: 048
     Dates: start: 20071101

REACTIONS (1)
  - PANCREATITIS [None]
